FAERS Safety Report 15447100 (Version 5)
Quarter: 2019Q1

REPORT INFORMATION
  Report Type: Report from Study
  Country: US (occurrence: US)
  Receive Date: 20180928
  Receipt Date: 20190314
  Transmission Date: 20190417
  Serious: Yes (Hospitalization, Other)
  Sender: FDA-Public Use
  Company Number: PHEH2018US040180

PATIENT
  Sex: Male

DRUGS (1)
  1. ENTRESTO [Suspect]
     Active Substance: SACUBITRIL\VALSARTAN
     Indication: CARDIAC FAILURE CONGESTIVE
     Route: 048

REACTIONS (8)
  - Cerebrovascular accident [Unknown]
  - Decreased appetite [Unknown]
  - Venous occlusion [Unknown]
  - Dizziness [Unknown]
  - Drug ineffective [Unknown]
  - Hypotension [Unknown]
  - Fluid retention [Unknown]
  - Asthenia [Unknown]
